FAERS Safety Report 13357883 (Version 4)
Quarter: 2018Q1

REPORT INFORMATION
  Report Type: Spontaneous
  Country: PR (occurrence: PR)
  Receive Date: 20170322
  Receipt Date: 20180307
  Transmission Date: 20180508
  Serious: No
  Sender: FDA-Public Use
  Company Number: PR-PFIZER INC-2017116522

PATIENT
  Age: 51 Year
  Sex: Female
  Weight: 72 kg

DRUGS (3)
  1. IBRANCE [Suspect]
     Active Substance: PALBOCICLIB
     Indication: BREAST CANCER
     Dosage: 125 MG, DAILY
     Route: 048
     Dates: start: 20170706
  2. IBRANCE [Suspect]
     Active Substance: PALBOCICLIB
     Dosage: UNK
  3. IBRANCE [Suspect]
     Active Substance: PALBOCICLIB
     Dosage: 125 MG, DAILY
     Route: 048
     Dates: start: 20170706

REACTIONS (10)
  - White blood cell count decreased [Unknown]
  - Odynophagia [Unknown]
  - Dyspepsia [Unknown]
  - Erythema [Unknown]
  - Decreased appetite [Unknown]
  - Nipple disorder [Unknown]
  - Pain [Unknown]
  - Blood glucose decreased [Unknown]
  - Ear infection [Unknown]
  - Oedema [Unknown]

NARRATIVE: CASE EVENT DATE: 2017
